FAERS Safety Report 4761811-6 (Version None)
Quarter: 2005Q3

REPORT INFORMATION
  Report Type: 
  Country: None (occurrence: None)
  Receive Date: 20050831
  Receipt Date: 20050610
  Transmission Date: 20060218
  Serious: No
  Sender: FDA-Public Use
  Company Number: PHEH2005US06657

PATIENT
  Age: 60 Year
  Sex: Female

DRUGS (6)
  1. ENABLEX [Suspect]
     Indication: POLLAKIURIA
     Dosage: 7.5 MG, QD
     Dates: end: 20050610
  2. LITHIUM CARBONATE [Concomitant]
  3. SYNTHROID (LEVOTHYROXINE SOIDUM) [Concomitant]
  4. ESTRADIOL [Concomitant]
  5. TOPAMAX [Concomitant]
  6. MILK OF MAGNESIA TAB [Concomitant]

REACTIONS (2)
  - DIZZINESS [None]
  - DYSPEPSIA [None]
